FAERS Safety Report 23860013 (Version 2)
Quarter: 2025Q3

REPORT INFORMATION
  Report Type: Spontaneous
  Country: US (occurrence: US)
  Receive Date: 20240515
  Receipt Date: 20250807
  Transmission Date: 20251021
  Serious: No
  Sender: SANOFI AVENTIS
  Company Number: US-SA-SAC20240513000189

PATIENT
  Age: 46 Year
  Sex: Female

DRUGS (2)
  1. DUPIXENT [Suspect]
     Active Substance: DUPILUMAB
     Route: 058
  2. DUPIXENT [Suspect]
     Active Substance: DUPILUMAB
     Dosage: 300 MG, QOW
     Route: 058
     Dates: end: 2025

REACTIONS (5)
  - Condition aggravated [Unknown]
  - Drug ineffective [Unknown]
  - Pruritus [Unknown]
  - Sleep disorder due to a general medical condition [Unknown]
  - Incorrect dose administered [Unknown]

NARRATIVE: CASE EVENT DATE: 20250101
